FAERS Safety Report 10589023 (Version 4)
Quarter: 2015Q1

REPORT INFORMATION
  Report Type: Spontaneous
  Country: US (occurrence: US)
  Receive Date: 20141118
  Receipt Date: 20150202
  Transmission Date: 20150720
  Serious: Yes (Other)
  Sender: FDA-Public Use
  Company Number: US-009507513-1411USA007662

PATIENT
  Sex: Female
  Weight: 81.18 kg

DRUGS (1)
  1. NEXPLANON [Suspect]
     Active Substance: ETONOGESTREL
     Indication: CONTRACEPTION
     Dosage: ETONOGESTREL IMPLANT, LEFT ARM
     Route: 059
     Dates: start: 20140515, end: 20141210

REACTIONS (4)
  - Pain in extremity [Recovered/Resolved]
  - Pain of skin [Unknown]
  - Device breakage [Recovered/Resolved]
  - Discomfort [Recovered/Resolved]

NARRATIVE: CASE EVENT DATE: 2014
